FAERS Safety Report 8815417 (Version 1)
Quarter: 2012Q4

REPORT INFORMATION
  Report Type: 
  Country: US (occurrence: US)
  Receive Date: 20120928
  Receipt Date: 20120928
  Transmission Date: 20130627
  Serious: Yes (Hospitalization)
  Sender: FDA-Public Use
  Company Number: US-B.I. PHARMACEUTICALS,INC./RIDGEFIELD-2012-BP-23236BP

PATIENT
  Sex: Male
  Weight: 78 kg

DRUGS (1)
  1. PRADAXA [Suspect]
     Indication: ANTICOAGULANT THERAPY
     Dosage: 300 mg
     Route: 048
     Dates: start: 201206, end: 201207

REACTIONS (2)
  - Rectal haemorrhage [Recovered/Resolved]
  - Haematuria [Recovered/Resolved]
